FAERS Safety Report 11107404 (Version 1)
Quarter: 2015Q2

REPORT INFORMATION
  Report Type: Spontaneous
  Country: US (occurrence: US)
  Receive Date: 20150512
  Receipt Date: 20150512
  Transmission Date: 20150821
  Serious: No
  Sender: FDA-Public Use
  Company Number: US-BAUSCH-BL-2014-001363

PATIENT
  Age: 76 Year
  Sex: Female
  Weight: 59.02 kg

DRUGS (2)
  1. BROMDAY [Suspect]
     Active Substance: BROMFENAC SODIUM
     Indication: PROCEDURAL PAIN
  2. BROMDAY [Suspect]
     Active Substance: BROMFENAC SODIUM
     Indication: POST PROCEDURAL INFLAMMATION
     Dosage: 1 DROP IN LEFT EYE TWICE DAILY
     Route: 061
     Dates: start: 20140307

REACTIONS (1)
  - Eye irritation [Unknown]

NARRATIVE: CASE EVENT DATE: 20140307
